FAERS Safety Report 11312176 (Version 1)
Quarter: 2015Q3

REPORT INFORMATION
  Report Type: Spontaneous
  Country: US (occurrence: None)
  Receive Date: 20150724
  Receipt Date: 20150724
  Transmission Date: 20151125
  Serious: No
  Sender: FDA-Public Use
  Company Number: None

PATIENT
  Age: 83 Year
  Sex: Male

DRUGS (6)
  1. DEXAMETHASONE. [Concomitant]
     Active Substance: DEXAMETHASONE
  2. LEVETIRACETAM. [Concomitant]
     Active Substance: LEVETIRACETAM
  3. PHENYTOIN. [Suspect]
     Active Substance: PHENYTOIN
     Indication: CONVULSION PROPHYLAXIS
     Route: 048
     Dates: start: 20150331, end: 20150401
  4. LANSOPRAZOLE. [Concomitant]
     Active Substance: LANSOPRAZOLE
  5. METOPROLOL [Concomitant]
     Active Substance: METOPROLOL
  6. SENNA [Concomitant]
     Active Substance: SENNA LEAF\SENNOSIDES\SENNOSIDES A AND B

REACTIONS (1)
  - Toxicity to various agents [None]

NARRATIVE: CASE EVENT DATE: 20150401
